FAERS Safety Report 26041195 (Version 1)
Quarter: 2025Q4

REPORT INFORMATION
  Report Type: Spontaneous
  Country: EU (occurrence: EU)
  Receive Date: 20251113
  Receipt Date: 20251113
  Transmission Date: 20260118
  Serious: Yes (Hospitalization, Other)
  Sender: SANOFI AVENTIS
  Company Number: None

PATIENT
  Age: 46 Year
  Sex: Male

DRUGS (4)
  1. OXALIPLATIN [Suspect]
     Active Substance: OXALIPLATIN
     Indication: Adenocarcinoma gastric stage IV
     Dosage: 85 MG/M2, QCY (HAS RECEIVED 3 CYCLES)
     Route: 042
     Dates: start: 20250618, end: 20250723
  2. FLUOROURACIL [Suspect]
     Active Substance: FLUOROURACIL
     Indication: Adenocarcinoma gastric stage IV
     Dosage: 400 MG/M2, QCY (HAS RECEIVED 3 CYCLES)
     Route: 042
     Dates: start: 20250618, end: 20250723
  3. KEYTRUDA [Suspect]
     Active Substance: PEMBROLIZUMAB
     Indication: Adenocarcinoma gastric stage IV
     Dosage: 2 MG/KG, Q3W (HAS RECEIVED 2 CYCLES)
     Route: 042
     Dates: start: 20250702, end: 20250723
  4. LEUCOVORIN CALCIUM [Concomitant]
     Active Substance: LEUCOVORIN CALCIUM
     Indication: Adenocarcinoma gastric stage IV
     Dosage: 400 MG/M2
     Route: 042
     Dates: start: 20250618

REACTIONS (3)
  - Immune-mediated dermatitis [Recovered/Resolved]
  - Immune-mediated nephritis [Recovering/Resolving]
  - Acute kidney injury [Recovering/Resolving]

NARRATIVE: CASE EVENT DATE: 20250806
